FAERS Safety Report 8455534-X (Version None)
Quarter: 2012Q2

REPORT INFORMATION
  Report Type: 
  Country: None (occurrence: None)
  Receive Date: 20120621
  Receipt Date: 20120613
  Transmission Date: 20120825
  Serious: Yes (Other)
  Sender: FDA-Public Use
  Company Number: BR-PFIZER INC-2012143272

PATIENT
  Age: 64 Year
  Sex: Male

DRUGS (4)
  1. HYDROCHLOROTHIAZIDE [Concomitant]
     Indication: HYPERTENSION
     Dosage: UNK
  2. XALATAN [Suspect]
     Dosage: ONE DROP IN EACH EYE (3 UG) 1X/DAY
     Route: 047
     Dates: start: 20090613
  3. AMLODIPINE [Concomitant]
     Indication: HYPERTENSION
     Dosage: UNK
  4. CAPTOPRIL [Concomitant]
     Indication: HYPERTENSION
     Dosage: 180 TABLETS MONTHLY

REACTIONS (3)
  - BLINDNESS UNILATERAL [None]
  - INTRAOCULAR PRESSURE INCREASED [None]
  - VISUAL IMPAIRMENT [None]
